FAERS Safety Report 5441618-7 (Version None)
Quarter: 2007Q3

REPORT INFORMATION
  Report Type: 
  Country: None (occurrence: None)
  Receive Date: 20070829
  Receipt Date: 20070816
  Transmission Date: 20080115
  Serious: Yes (Hospitalization)
  Sender: FDA-Public Use
  Company Number: 2006P1000227

PATIENT
  Age: 66 Year
  Sex: Male

DRUGS (13)
  1. RETEPLASE (RETEPLASE) [Suspect]
     Indication: ACUTE MYOCARDIAL INFARCTION
     Dosage: 5 IU; BID; IV
     Route: 042
     Dates: start: 20060110, end: 20060110
  2. ABCIXIMAB (ABCIXIMAB) [Suspect]
     Indication: ACUTE MYOCARDIAL INFARCTION
     Dosage: 13.4 MG; X1; IV, 39.6 MG; X1; IV
     Route: 042
     Dates: start: 20060110, end: 20060110
  3. ABCIXIMAB (ABCIXIMAB) [Suspect]
     Indication: ACUTE MYOCARDIAL INFARCTION
     Dosage: 13.4 MG; X1; IV, 39.6 MG; X1; IV
     Route: 042
     Dates: start: 20060110, end: 20060110
  4. PLACEBO (PLACEBO) [Suspect]
     Indication: ACUTE MYOCARDIAL INFARCTION
     Dosage: 0.25 MG/KG; X1; IV
     Route: 042
     Dates: start: 20060110, end: 20060110
  5. ENALAPRIL MALEATE [Concomitant]
  6. ATORVASTATIN CALCIUM [Concomitant]
  7. OXAZEPAM [Concomitant]
  8. NOVOTHYRAL [Concomitant]
  9. CLOPIDOGREL BISULFATE [Concomitant]
  10. ASPIRIN [Concomitant]
  11. NEBIVOLOL [Concomitant]
  12. LOVENOX [Concomitant]
  13. PANTOPRAZOLE SODIUM [Concomitant]

REACTIONS (1)
  - HYPERTENSIVE CRISIS [None]
